FAERS Safety Report 11168433 (Version 1)
Quarter: 2015Q2

REPORT INFORMATION
  Report Type: Spontaneous
  Country: IT (occurrence: IT)
  Receive Date: 20150605
  Receipt Date: 20150605
  Transmission Date: 20150821
  Serious: Yes (Other)
  Sender: FDA-Public Use
  Company Number: IT-GLAXOSMITHKLINE-IT2015GSK073418

PATIENT
  Age: 49 Year
  Sex: Female

DRUGS (4)
  1. PLAQUENIL [Concomitant]
     Active Substance: HYDROXYCHLOROQUINE SULFATE
  2. MICOFENOLATO MOFETIL [Concomitant]
     Dosage: 2 G, UNK
     Route: 048
  3. DELTACORTENE [Concomitant]
     Active Substance: PREDNISONE
     Dosage: 6.25 MG, UNK
     Route: 048
  4. BELIMUMAB [Suspect]
     Active Substance: BELIMUMAB
     Indication: SYSTEMIC LUPUS ERYTHEMATOSUS
     Dosage: 10 MG/KG, CYC
     Route: 042
     Dates: start: 20150318, end: 20150415

REACTIONS (1)
  - Neutropenia [Recovering/Resolving]

NARRATIVE: CASE EVENT DATE: 20150513
